FAERS Safety Report 24358722 (Version 2)
Quarter: 2024Q4

REPORT INFORMATION
  Report Type: Spontaneous
  Country: US (occurrence: US)
  Receive Date: 20240924
  Receipt Date: 20241007
  Transmission Date: 20250114
  Serious: No
  Sender: PFIZER
  Company Number: US-PFIZER INC-PV202400123756

PATIENT
  Sex: Female

DRUGS (2)
  1. DOCETAXEL [Suspect]
     Active Substance: DOCETAXEL
     Dosage: UNK
     Dates: start: 20220603, end: 20240705
  2. DOCETAXEL [Suspect]
     Active Substance: DOCETAXEL
     Dosage: UNK
     Dates: start: 20220603, end: 20240705

REACTIONS (2)
  - Lacrimation increased [Unknown]
  - Lacrimal structure injury [Not Recovered/Not Resolved]
